FAERS Safety Report 20881490 (Version 1)
Quarter: 2022Q2

REPORT INFORMATION
  Report Type: Spontaneous
  Country: AR (occurrence: AR)
  Receive Date: 20220526
  Receipt Date: 20220526
  Transmission Date: 20220720
  Serious: Yes (Other)
  Sender: FDA-Public Use
  Company Number: AR-PFIZER INC-202200730630

PATIENT
  Age: 69 Year
  Sex: Male

DRUGS (1)
  1. ENBREL [Suspect]
     Active Substance: ETANERCEPT
     Indication: Rheumatoid arthritis
     Dosage: 50 MG (EVERY 10 DAYS)
     Route: 065
     Dates: start: 20111017

REACTIONS (5)
  - Finger deformity [Unknown]
  - Off label use [Unknown]
  - Memory impairment [Unknown]
  - Foot deformity [Unknown]
  - Hand deformity [Unknown]

NARRATIVE: CASE EVENT DATE: 20111017
